FAERS Safety Report 6475741-5 (Version None)
Quarter: 2009Q4

REPORT INFORMATION
  Report Type: 
  Country: None (occurrence: None)
  Receive Date: 20091119
  Receipt Date: 20090915
  Transmission Date: 20100525
  Serious: Yes (Hospitalization, Other)
  Sender: FDA-Public Use
  Company Number: 2009SP025373

PATIENT
  Age: 17 Year
  Sex: Female

DRUGS (1)
  1. IMPLANON [Suspect]
     Indication: CONTRACEPTION
     Dosage: 1 DF; SBDE
     Route: 059
     Dates: start: 20090821, end: 20090912

REACTIONS (2)
  - MOOD SWINGS [None]
  - SUICIDAL BEHAVIOUR [None]
